FAERS Safety Report 24639732 (Version 2)
Quarter: 2024Q4

REPORT INFORMATION
  Report Type: Spontaneous
  Country: US (occurrence: US)
  Receive Date: 20241119
  Receipt Date: 20241213
  Transmission Date: 20250115
  Serious: Yes (Other)
  Sender: GENMAB
  Company Number: US-GENMAB-2024-03649

PATIENT
  Age: 45 Year
  Sex: Male
  Weight: 63.039 kg

DRUGS (17)
  1. EPKINLY [Suspect]
     Active Substance: EPCORITAMAB-BYSP
     Indication: Diffuse large B-cell lymphoma refractory
     Dosage: 0.16 MILLIGRAM C1D1
     Route: 058
     Dates: start: 20240912
  2. EPKINLY [Suspect]
     Active Substance: EPCORITAMAB-BYSP
     Dosage: 0.8 MILLIGRAM C1D8
     Route: 065
     Dates: start: 20240919
  3. EPKINLY [Suspect]
     Active Substance: EPCORITAMAB-BYSP
     Dosage: 48 MILLIGRAM C1D15
     Route: 065
     Dates: start: 20240926
  4. EPKINLY [Suspect]
     Active Substance: EPCORITAMAB-BYSP
     Dosage: 48 MILLIGRAM C1D22
     Route: 065
     Dates: start: 20241003
  5. EPKINLY [Suspect]
     Active Substance: EPCORITAMAB-BYSP
     Dosage: 48 MILLIGRAM C2D1
     Route: 065
     Dates: start: 20241010
  6. EPKINLY [Suspect]
     Active Substance: EPCORITAMAB-BYSP
     Dosage: 48 MILLIGRAM C2D8
     Route: 065
     Dates: start: 20241017
  7. EPKINLY [Suspect]
     Active Substance: EPCORITAMAB-BYSP
     Dosage: 48 MILLIGRAM C2D15
     Route: 065
     Dates: start: 20241024
  8. EPKINLY [Suspect]
     Active Substance: EPCORITAMAB-BYSP
     Dosage: 48 MILLIGRAM C2D22
     Route: 065
     Dates: start: 20241031
  9. EPKINLY [Suspect]
     Active Substance: EPCORITAMAB-BYSP
     Dosage: 48 MILLIGRAM C3D1
     Route: 065
     Dates: start: 20241107
  10. ACETAMINOPHEN [Concomitant]
     Active Substance: ACETAMINOPHEN
     Indication: Premedication
     Dosage: 650 MILLIGRAM
     Route: 065
  11. DIPHENHYDRAMINE [Concomitant]
     Active Substance: DIPHENHYDRAMINE
     Indication: Premedication
     Dosage: 50 MILLIGRAM
     Route: 065
  12. DEXAMETHASONE [Concomitant]
     Active Substance: DEXAMETHASONE
     Indication: Premedication
     Dosage: 20 MILLIGRAM PRIOR TO EACH DOSE IN C1
     Route: 065
  13. VALACYCLOVIR [Concomitant]
     Active Substance: VALACYCLOVIR HYDROCHLORIDE
     Indication: Prophylaxis
     Dosage: 500 MILLIGRAM, BID
     Route: 065
  14. SULFAMETHOXAZOLE\TRIMETHOPRIM [Concomitant]
     Active Substance: SULFAMETHOXAZOLE\TRIMETHOPRIM
     Indication: Prophylaxis
     Dosage: 400-80MG DAILY
     Route: 065
  15. BACTRIM [Concomitant]
     Active Substance: SULFAMETHOXAZOLE\TRIMETHOPRIM
     Dosage: UNK
     Route: 065
  16. VALTREX [Concomitant]
     Active Substance: VALACYCLOVIR HYDROCHLORIDE
     Dosage: UNK
     Route: 065
  17. PREDNISONE [Concomitant]
     Active Substance: PREDNISONE
     Dosage: UNK
     Route: 065

REACTIONS (3)
  - Depressed level of consciousness [Unknown]
  - Arthralgia [Recovered/Resolved]
  - Constipation [Unknown]

NARRATIVE: CASE EVENT DATE: 20240901
